FAERS Safety Report 8200693-7 (Version None)
Quarter: 2012Q1

REPORT INFORMATION
  Report Type: 
  Country: None (occurrence: None)
  Receive Date: 20120223
  Receipt Date: 20120208
  Transmission Date: 20120608
  Serious: Yes (Hospitalization)
  Sender: FDA-Public Use
  Company Number: 2011PROUSA00989

PATIENT
  Age: 63 Year
  Sex: Male
  Weight: 127 kg

DRUGS (17)
  1. MIRALAX /00754501/ (MACROGOL) [Concomitant]
  2. DILAUDID [Concomitant]
  3. MILK OF MAGNESIA TAB [Concomitant]
  4. PROVENGE [Suspect]
     Indication: PROSTATE CANCER METASTATIC
     Dosage: 250 ML, SINGLE
     Dates: start: 20111024, end: 20111024
  5. TYLENOL /00020001/ (PARACETAMOL) [Concomitant]
  6. PROVENGE [Suspect]
     Dosage: 250 ML, SINGLE
     Dates: start: 20111215, end: 20111215
  7. BENADRYL [Concomitant]
  8. PHENERGAN /00033001/ (PROMETHAZINE) [Concomitant]
  9. AMBIEN [Concomitant]
  10. CELEBREX [Concomitant]
  11. BENICAR [Concomitant]
  12. ZOFRAN /00955301/ (ONDANSETRON) [Concomitant]
  13. PROVENGE [Suspect]
     Dosage: 250 ML, SINGLE
     Dates: start: 20111107, end: 20111107
  14. PREVACID [Concomitant]
  15. OXYCODONE HCL [Concomitant]
  16. CENTRUM /00554501/ (MINERALS NOS, VITAMINS NOS) [Concomitant]
  17. BENEFIBER /00677201/ (DEXTRIN) [Concomitant]

REACTIONS (15)
  - LUMBAR SPINAL STENOSIS [None]
  - FALL [None]
  - DEVICE RELATED INFECTION [None]
  - VERTEBRAL FORAMINAL STENOSIS [None]
  - BACK PAIN [None]
  - PAIN IN EXTREMITY [None]
  - HAEMOGLOBIN DECREASED [None]
  - CONDITION AGGRAVATED [None]
  - NAUSEA [None]
  - VOMITING [None]
  - CONSTIPATION [None]
  - FACET JOINT SYNDROME [None]
  - HAEMATOCRIT DECREASED [None]
  - INTERVERTEBRAL DISC PROTRUSION [None]
  - ASPARTATE AMINOTRANSFERASE INCREASED [None]
